FAERS Safety Report 21179763 (Version 5)
Quarter: 2022Q4

REPORT INFORMATION
  Report Type: Spontaneous
  Country: DE (occurrence: DE)
  Receive Date: 20220805
  Receipt Date: 20221213
  Transmission Date: 20230113
  Serious: Yes (Other)
  Sender: FDA-Public Use
  Company Number: DE-NOVARTISPH-NVSC2022DE172737

PATIENT
  Sex: Male
  Weight: 77 kg

DRUGS (91)
  1. MOMETASONE FUROATE [Suspect]
     Active Substance: MOMETASONE FUROATE
     Indication: Product used for unknown indication
     Dosage: UNK, PRN (2 PUFFS)
     Route: 065
  2. MOMETASONE FUROATE [Suspect]
     Active Substance: MOMETASONE FUROATE
     Dosage: 2 DOSAGE FORM
     Route: 065
  3. MOMETASONE FUROATE [Suspect]
     Active Substance: MOMETASONE FUROATE
     Dosage: 2 DOSAGE FORM, BID (2 PUFFS BID)
     Route: 065
  4. MOMETASONE FUROATE [Suspect]
     Active Substance: MOMETASONE FUROATE
     Dosage: UNK, PRN
     Route: 065
  5. ASPIRIN [Suspect]
     Active Substance: ASPIRIN
     Indication: Product used for unknown indication
     Dosage: UNK UNK, UNKNOWN (STRENGTH: 100)
     Route: 065
  6. BIOTIN [Suspect]
     Active Substance: BIOTIN
     Indication: Product used for unknown indication
     Dosage: UNK, QD
     Route: 065
  7. IBUPROFEN [Suspect]
     Active Substance: IBUPROFEN
     Indication: Product used for unknown indication
     Dosage: UNK, PRN
     Route: 065
  8. ROSUVASTATIN CALCIUM [Suspect]
     Active Substance: ROSUVASTATIN CALCIUM
     Indication: Product used for unknown indication
     Dosage: UNK
     Route: 065
  9. TADALAFIL [Suspect]
     Active Substance: TADALAFIL
     Indication: Product used for unknown indication
     Dosage: UNK
     Route: 065
  10. BISOPROLOL [Suspect]
     Active Substance: BISOPROLOL
     Indication: Product used for unknown indication
     Dosage: UNK, QD (1-0-0)
     Route: 065
     Dates: start: 20201210
  11. ALBUTEROL SULFATE [Suspect]
     Active Substance: ALBUTEROL SULFATE
     Indication: Secretion discharge
     Dosage: UNK
     Dates: start: 2018, end: 2018
  12. ALBUTEROL SULFATE [Suspect]
     Active Substance: ALBUTEROL SULFATE
     Indication: Dysphonia
  13. ALBUTEROL SULFATE [Suspect]
     Active Substance: ALBUTEROL SULFATE
     Indication: Nasopharyngitis
  14. ALBUTEROL SULFATE [Suspect]
     Active Substance: ALBUTEROL SULFATE
     Indication: Pneumothorax
  15. ALBUTEROL SULFATE [Suspect]
     Active Substance: ALBUTEROL SULFATE
     Indication: Dysphonia
  16. ALBUTEROL SULFATE [Suspect]
     Active Substance: ALBUTEROL SULFATE
     Indication: Pneumothorax
  17. DICLOFENAC DIETHYLAMINE [Suspect]
     Active Substance: DICLOFENAC DIETHYLAMINE
     Indication: Product used for unknown indication
     Dosage: UNK
     Route: 065
  18. CALCIUM CARBONATE [Suspect]
     Active Substance: CALCIUM CARBONATE
     Indication: Product used for unknown indication
     Dosage: UNK (1 IN 1.5 DAY UNK, CALCIUM HEXAL (CALCIUM CARBONATE)
     Route: 065
  19. TAMSULOSIN HYDROCHLORIDE [Suspect]
     Active Substance: TAMSULOSIN HYDROCHLORIDE
     Indication: Product used for unknown indication
     Dosage: UNK
     Route: 065
  20. XARELTO [Suspect]
     Active Substance: RIVAROXABAN
     Indication: Product used for unknown indication
     Dosage: UNK
     Route: 065
  21. AMBROXOL HYDROCHLORIDE [Suspect]
     Active Substance: AMBROXOL HYDROCHLORIDE
     Indication: Product used for unknown indication
     Dosage: UNK
  22. ASPIRIN CALCIUM [Suspect]
     Active Substance: ASPIRIN CALCIUM
     Indication: Product used for unknown indication
     Dosage: UNK, BID (1-0-1)
     Route: 065
  23. ATROVENT [Suspect]
     Active Substance: IPRATROPIUM BROMIDE
     Indication: Pneumothorax
     Dosage: UNK
     Route: 065
  24. ATROVENT [Suspect]
     Active Substance: IPRATROPIUM BROMIDE
     Indication: Cough
     Dosage: UNK
     Dates: start: 2018, end: 2018
  25. ATROVENT [Suspect]
     Active Substance: IPRATROPIUM BROMIDE
     Indication: Secretion discharge
  26. ATROVENT [Suspect]
     Active Substance: IPRATROPIUM BROMIDE
     Indication: Dysphonia
  27. ATROVENT [Suspect]
     Active Substance: IPRATROPIUM BROMIDE
     Indication: Nasopharyngitis
  28. ATROVENT [Suspect]
     Active Substance: IPRATROPIUM BROMIDE
     Indication: Dyspnoea
  29. ATROVENT [Suspect]
     Active Substance: IPRATROPIUM BROMIDE
     Indication: Dysphonia
  30. OLMESARTAN MEDOXOMIL [Suspect]
     Active Substance: OLMESARTAN MEDOXOMIL
     Indication: Product used for unknown indication
     Dosage: UNK, BID (1-0-1) (STRENGTH: 500 MG)
     Route: 065
  31. OLMESARTAN MEDOXOMIL [Suspect]
     Active Substance: OLMESARTAN MEDOXOMIL
     Dosage: UNK (STRENGTH: 10)
     Route: 065
  32. MAGNESIUM ASPARTATE\POTASSIUM ASPARTATE [Suspect]
     Active Substance: MAGNESIUM ASPARTATE\POTASSIUM ASPARTATE
     Indication: Product used for unknown indication
     Dosage: UNK
     Route: 065
  33. ERGOCALCIFEROL [Suspect]
     Active Substance: ERGOCALCIFEROL
     Indication: Product used for unknown indication
     Dosage: 20000 IU, QW
     Route: 065
  34. ERGOCALCIFEROL [Suspect]
     Active Substance: ERGOCALCIFEROL
     Dosage: 20000 IU, QW
     Route: 065
  35. HERBALS [Suspect]
     Active Substance: HERBALS
     Indication: Product used for unknown indication
     Dosage: UNK
     Route: 065
  36. SOAP [Suspect]
     Active Substance: SOAP
     Indication: Dysphonia
     Dosage: UNK (CUTANEOUS EMULSION)
     Route: 065
  37. SOAP [Suspect]
     Active Substance: SOAP
     Indication: Bronchitis
     Dosage: UNK, Q3W
     Route: 065
  38. SOAP [Suspect]
     Active Substance: SOAP
     Indication: Secretion discharge
     Dosage: UNK, QD
     Route: 065
  39. SOAP [Suspect]
     Active Substance: SOAP
     Indication: Asthma
     Dosage: 10 DRP, QD
     Route: 065
  40. SOAP [Suspect]
     Active Substance: SOAP
     Indication: Pneumothorax
     Dosage: UNK, TID
     Route: 065
  41. SOAP [Suspect]
     Active Substance: SOAP
     Indication: Dyspnoea
  42. SOAP [Suspect]
     Active Substance: SOAP
     Indication: Nasopharyngitis
  43. SOAP [Suspect]
     Active Substance: SOAP
     Indication: Cough
  44. MAGNESIUM OROTATE [Suspect]
     Active Substance: MAGNESIUM OROTATE
     Indication: Product used for unknown indication
     Dosage: UNK UNK, UNKNOWN FREQ. (3-2-3)
     Route: 065
  45. FLUTICASONE PROPIONATE\SALMETEROL XINAFOATE [Suspect]
     Active Substance: FLUTICASONE PROPIONATE\SALMETEROL XINAFOATE
     Indication: Nasopharyngitis
     Dosage: UNK
     Dates: start: 2018, end: 2018
  46. FLUTICASONE PROPIONATE\SALMETEROL XINAFOATE [Suspect]
     Active Substance: FLUTICASONE PROPIONATE\SALMETEROL XINAFOATE
     Indication: Secretion discharge
  47. FLUTICASONE PROPIONATE\SALMETEROL XINAFOATE [Suspect]
     Active Substance: FLUTICASONE PROPIONATE\SALMETEROL XINAFOATE
     Indication: Pneumothorax
  48. FLUTICASONE PROPIONATE\SALMETEROL XINAFOATE [Suspect]
     Active Substance: FLUTICASONE PROPIONATE\SALMETEROL XINAFOATE
     Indication: Dysphonia
  49. REPATHA [Suspect]
     Active Substance: EVOLOCUMAB
     Indication: Product used for unknown indication
     Dosage: UNK, Q3W
     Route: 065
  50. REPATHA [Suspect]
     Active Substance: EVOLOCUMAB
     Dosage: UNK, QW
     Route: 065
  51. DIETARY SUPPLEMENT [Suspect]
     Active Substance: DIETARY SUPPLEMENT
     Indication: Product used for unknown indication
     Dosage: UNK UNK, TID
     Route: 065
  52. DIETARY SUPPLEMENT [Suspect]
     Active Substance: DIETARY SUPPLEMENT
     Dosage: UNK, Q8H
     Route: 065
  53. DIETARY SUPPLEMENT [Suspect]
     Active Substance: DIETARY SUPPLEMENT
     Dosage: UNK UNK, TID (2-0-1)
     Route: 065
  54. PRALUENT [Suspect]
     Active Substance: ALIROCUMAB
     Indication: Product used for unknown indication
     Dosage: UNK,  75 UNKNOWN
     Route: 065
  55. CLOPIDOGREL BISULFATE [Suspect]
     Active Substance: CLOPIDOGREL BISULFATE
     Indication: Product used for unknown indication
     Dosage: UNK
     Route: 065
  56. COLESEVELAM HYDROCHLORIDE [Suspect]
     Active Substance: COLESEVELAM HYDROCHLORIDE
     Indication: Product used for unknown indication
     Dosage: UNK
     Route: 065
  57. VITAMIN E [Suspect]
     Active Substance: .ALPHA.-TOCOPHEROL
     Indication: Product used for unknown indication
     Dosage: 20000 IU, QW
     Route: 065
  58. VITAMIN E [Suspect]
     Active Substance: .ALPHA.-TOCOPHEROL
     Dosage: 20000 UNK, Q2W
     Route: 065
  59. VITAMIN E [Suspect]
     Active Substance: .ALPHA.-TOCOPHEROL
     Dosage: UNK, QW
     Route: 065
  60. HERBALS\PHENYL SALICYLATE [Suspect]
     Active Substance: HERBALS\PHENYL SALICYLATE
     Indication: Asthma
     Dosage: 10 DRP, QD (10 GTT, QD)
     Route: 065
  61. HERBALS\PHENYL SALICYLATE [Suspect]
     Active Substance: HERBALS\PHENYL SALICYLATE
     Indication: Bronchitis
     Dosage: UNK, BID (STRENGTH: 500) (1-0-1)
     Route: 065
  62. HERBALS\PHENYL SALICYLATE [Suspect]
     Active Substance: HERBALS\PHENYL SALICYLATE
     Dosage: 10 DRP, BID
     Route: 065
  63. IBUPROFEN [Suspect]
     Active Substance: IBUPROFEN
     Indication: Product used for unknown indication
     Dosage: UNK (PRN)
     Route: 065
  64. CRESTOR [Suspect]
     Active Substance: ROSUVASTATIN CALCIUM
     Indication: Product used for unknown indication
     Dosage: UNK
     Route: 065
  65. MAGNESIUM OROTATE [Suspect]
     Active Substance: MAGNESIUM OROTATE
     Indication: Product used for unknown indication
     Dosage: UNK, TID (3-2-3)
     Route: 065
  66. MAGNESIUM OROTATE [Suspect]
     Active Substance: MAGNESIUM OROTATE
     Dosage: UNK, TID, DAILY (3-2-3)
     Route: 065
  67. MAGNESIUM ASPARTATE\POTASSIUM ASPARTATE [Suspect]
     Active Substance: MAGNESIUM ASPARTATE\POTASSIUM ASPARTATE
     Indication: Product used for unknown indication
     Dosage: UNK
     Route: 065
  68. GINKGO [Suspect]
     Active Substance: GINKGO
     Indication: Product used for unknown indication
     Dosage: UNK, BID (STRENGTH: 500) (1-0-1))
     Route: 065
  69. VOLTAREN [Suspect]
     Active Substance: DICLOFENAC SODIUM
     Indication: Product used for unknown indication
     Dosage: UNK
     Route: 065
  70. MOMETASONE [Suspect]
     Active Substance: MOMETASONE
     Indication: Product used for unknown indication
     Dosage: UNK
     Route: 065
  71. MOMETASONE [Suspect]
     Active Substance: MOMETASONE
     Dosage: UNK, PRN
     Route: 065
  72. VITAMIN D [Suspect]
     Active Substance: VITAMIN D NOS
     Indication: Product used for unknown indication
     Dosage: 20000 IU, QW
     Route: 065
  73. VITAMIN D [Suspect]
     Active Substance: VITAMIN D NOS
     Dosage: 20000 IU, QW
     Route: 065
  74. RIVAROXABAN [Suspect]
     Active Substance: RIVAROXABAN
     Indication: Product used for unknown indication
     Dosage: UNK
     Route: 065
  75. OLMESARTAN MEDOXOMIL [Suspect]
     Active Substance: OLMESARTAN MEDOXOMIL
     Indication: Product used for unknown indication
     Dosage: UNK, #1
     Route: 065
  76. CALCIUM PANTOTHENATE [Suspect]
     Active Substance: CALCIUM PANTOTHENATE
     Indication: Product used for unknown indication
     Dosage: UNK, Q8H
     Route: 065
  77. SALMETEROL XINAFOATE [Suspect]
     Active Substance: SALMETEROL XINAFOATE
     Indication: Nasopharyngitis
     Dosage: UNK
     Dates: start: 2018, end: 2018
  78. SALMETEROL XINAFOATE [Suspect]
     Active Substance: SALMETEROL XINAFOATE
     Indication: Cough
  79. SALMETEROL XINAFOATE [Suspect]
     Active Substance: SALMETEROL XINAFOATE
     Indication: Dyspnoea
  80. SALMETEROL XINAFOATE [Suspect]
     Active Substance: SALMETEROL XINAFOATE
     Indication: Chest discomfort
  81. SALMETEROL XINAFOATE [Suspect]
     Active Substance: SALMETEROL XINAFOATE
     Indication: Secretion discharge
  82. SALMETEROL XINAFOATE [Suspect]
     Active Substance: SALMETEROL XINAFOATE
     Indication: Dysphonia
  83. CIALIS [Suspect]
     Active Substance: TADALAFIL
     Indication: Product used for unknown indication
     Dosage: UNK
     Route: 065
  84. EVOLOCUMAB [Concomitant]
     Active Substance: EVOLOCUMAB
     Indication: Product used for unknown indication
     Dosage: UNK, Q3W
     Route: 065
  85. MAGNESIUM ASPARTATE ANHYDROUS [Concomitant]
     Active Substance: MAGNESIUM ASPARTATE ANHYDROUS
     Indication: Product used for unknown indication
     Dosage: UNK, BID (1-0-1)
     Route: 065
  86. AMBROXOL HYDROCHLORIDE [Concomitant]
     Active Substance: AMBROXOL HYDROCHLORIDE
     Indication: Product used for unknown indication
     Dosage: UNK
     Route: 065
  87. CALCIUM [Concomitant]
     Active Substance: CALCIUM
     Indication: Product used for unknown indication
     Dosage: UNK, BID
     Route: 065
  88. DICLOFENAC [Concomitant]
     Active Substance: DICLOFENAC
     Indication: Product used for unknown indication
     Dosage: UNK
     Route: 065
  89. PREDNISOLONE [Concomitant]
     Active Substance: PREDNISOLONE
     Indication: Product used for unknown indication
     Dosage: UNK (FOR 6 DAYS)
     Route: 065
  90. PREDNISOLONE [Concomitant]
     Active Substance: PREDNISOLONE
     Dosage: UNK, OTHER (FOR 6 DAYS)
     Route: 065
  91. CLOPIDOGREL [Concomitant]
     Active Substance: CLOPIDOGREL BISULFATE
     Indication: Product used for unknown indication
     Dosage: UNK
     Route: 065

REACTIONS (22)
  - Cardiac disorder [Unknown]
  - Dysphonia [Unknown]
  - Pneumothorax [Unknown]
  - Sensation of foreign body [Unknown]
  - Obstructive airways disorder [Unknown]
  - Obstructive sleep apnoea syndrome [Unknown]
  - Cough [Not Recovered/Not Resolved]
  - Brain natriuretic peptide increased [Unknown]
  - Chest discomfort [Unknown]
  - Secretion discharge [Unknown]
  - Eosinophilia [Unknown]
  - Fractional exhaled nitric oxide increased [Recovered/Resolved]
  - Coronary artery disease [Unknown]
  - Exostosis [Unknown]
  - Plantar fasciitis [Unknown]
  - Myoglobin blood increased [Unknown]
  - Muscle spasms [Unknown]
  - Wheezing [Unknown]
  - Nasopharyngitis [Unknown]
  - Dyspnoea exertional [Unknown]
  - Atrial fibrillation [Recovered/Resolved]
  - Dyspnoea [Unknown]

NARRATIVE: CASE EVENT DATE: 20180101
